FAERS Safety Report 11139767 (Version 2)
Quarter: 2015Q3

REPORT INFORMATION
  Report Type: Spontaneous
  Country: IT (occurrence: IT)
  Receive Date: 20150527
  Receipt Date: 20150728
  Transmission Date: 20151125
  Serious: Yes (Other)
  Sender: FDA-Public Use
  Company Number: IT-AMGEN-ITASP2015050712

PATIENT
  Age: 80 Year
  Sex: Female

DRUGS (1)
  1. PROLIA [Suspect]
     Active Substance: DENOSUMAB
     Indication: OSTEOPOROSIS
     Dosage: 60 MG, Q6MO
     Route: 058
     Dates: start: 20140321

REACTIONS (5)
  - Blood parathyroid hormone increased [Unknown]
  - Abdominal pain [Recovering/Resolving]
  - Eosinophil percentage increased [Unknown]
  - Neutrophil percentage decreased [Unknown]
  - Peritonitis [Unknown]

NARRATIVE: CASE EVENT DATE: 20150101
